FAERS Safety Report 8205821-5 (Version None)
Quarter: 2012Q1

REPORT INFORMATION
  Report Type: 
  Country: None (occurrence: None)
  Receive Date: 20120313
  Receipt Date: 20120301
  Transmission Date: 20120608
  Serious: Yes (Other)
  Sender: FDA-Public Use
  Company Number: DE-SANOFI-AVENTIS-2012SA016284

PATIENT
  Sex: Male

DRUGS (4)
  1. DOCETAXEL [Suspect]
     Dosage: TOTAL DOSE: 156 MG
     Route: 051
     Dates: start: 20070614, end: 20070614
  2. DOCETAXEL [Suspect]
     Route: 051
     Dates: start: 20061107, end: 20061219
  3. DOCETAXEL [Suspect]
     Indication: NEOPLASM PROSTATE
     Dosage: TOTAL DOSE: 160 MG
     Route: 051
     Dates: start: 20070109, end: 20070109
  4. DOCETAXEL [Suspect]
     Route: 051
     Dates: start: 20070412, end: 20070524

REACTIONS (3)
  - NEUTROPENIC INFECTION [None]
  - INFECTION [None]
  - HYPONATRAEMIA [None]
